FAERS Safety Report 4667215-9 (Version None)
Quarter: 2005Q2

REPORT INFORMATION
  Report Type: 
  Country: None (occurrence: None)
  Receive Date: 20050520
  Receipt Date: 20040917
  Transmission Date: 20051028
  Serious: No
  Sender: FDA-Public Use
  Company Number: US-BRISTOL-MYERS SQUIBB COMPANY-12706297

PATIENT
  Age: 70 Year
  Sex: Male
  Weight: 82 kg

DRUGS (5)
  1. CARBIDOPA + LEVODOPA [Suspect]
     Indication: PARKINSON'S DISEASE
     Dosage: ONE TABLET = 25MG/100MG
     Route: 048
     Dates: start: 20031001
  2. COMTAN [Suspect]
     Indication: PARKINSON'S DISEASE
     Route: 048
     Dates: start: 20040101
  3. DEPAKOTE [Concomitant]
     Indication: GRAND MAL CONVULSION
  4. DIAMOX [Concomitant]
     Indication: GRAND MAL CONVULSION
  5. COUMADIN [Concomitant]
     Indication: DEEP VEIN THROMBOSIS
     Dates: start: 20040301

REACTIONS (1)
  - PARAPHILIA [None]
